FAERS Safety Report 6410146-4 (Version None)
Quarter: 2009Q4

REPORT INFORMATION
  Report Type: 
  Country: None (occurrence: None)
  Receive Date: 20091020
  Receipt Date: 20091020
  Transmission Date: 20100525
  Serious: No
  Sender: FDA-Public Use
  Company Number: None

PATIENT
  Age: 79 Year
  Sex: Female
  Weight: 47.6277 kg

DRUGS (14)
  1. ALENDRONATE SODIUM [Suspect]
     Indication: OSTEOPOROSIS
     Dosage: 70 MG ONCE WEEKLY ORAL
     Route: 048
     Dates: start: 20061101, end: 20090817
  2. PRAZSOIN HCL [Concomitant]
  3. DILTIAZEM [Concomitant]
  4. METOPROLOL TARTRATE [Concomitant]
  5. AVAPRO [Concomitant]
  6. SIMVASTATIN [Concomitant]
  7. ASPIRIN [Concomitant]
  8. PREMPRO [Concomitant]
  9. DIAZEPAM [Concomitant]
  10. ALEVE [Concomitant]
  11. MULTI-VITAMIN [Concomitant]
  12. CALCIUM + D. [Concomitant]
  13. GLUCOSAMINE CHONDROITIN [Concomitant]
  14. FISH OIL [Concomitant]

REACTIONS (12)
  - BURNING SENSATION [None]
  - CHEILITIS [None]
  - GINGIVAL BLEEDING [None]
  - GINGIVAL ERYTHEMA [None]
  - GINGIVAL PAIN [None]
  - GINGIVAL ULCERATION [None]
  - LIP PAIN [None]
  - MASTICATION DISORDER [None]
  - MOUTH HAEMORRHAGE [None]
  - PAIN IN JAW [None]
  - STOMATITIS [None]
  - TONGUE HAEMORRHAGE [None]
